FAERS Safety Report 9310827 (Version 1)
Quarter: 2013Q2

REPORT INFORMATION
  Report Type: Spontaneous
  Country: US (occurrence: None)
  Receive Date: 20130523
  Receipt Date: 20130523
  Transmission Date: 20140414
  Serious: No
  Sender: FDA-Public Use
  Company Number: None

PATIENT
  Age: 72 Year
  Sex: Female
  Weight: 83.46 kg

DRUGS (1)
  1. CRIZOTINIB [Suspect]
     Indication: LUNG NEOPLASM MALIGNANT
     Route: 048
     Dates: start: 20130307, end: 20130321

REACTIONS (4)
  - Local swelling [None]
  - Weight increased [None]
  - Renal failure [None]
  - Fluid retention [None]
